FAERS Safety Report 23504123 (Version 4)
Quarter: 2024Q3

REPORT INFORMATION
  Report Type: Spontaneous
  Country: AU (occurrence: AU)
  Receive Date: 20240209
  Receipt Date: 20240913
  Transmission Date: 20241016
  Serious: Yes (Death)
  Sender: ROCHE
  Company Number: AU-ROCHE-3505903

PATIENT
  Age: 48 Year
  Sex: Male

DRUGS (10)
  1. TOCILIZUMAB [Suspect]
     Active Substance: TOCILIZUMAB
     Indication: COVID-19
     Dosage: SINGLE DOSE
     Route: 065
  2. GANCICLOVIR SODIUM [Suspect]
     Active Substance: GANCICLOVIR SODIUM
     Indication: Pneumonia cytomegaloviral
     Route: 042
     Dates: start: 2022, end: 2022
  3. DEXAMETHASONE [Suspect]
     Active Substance: DEXAMETHASONE
     Indication: COVID-19
     Route: 042
  4. HYDROCORTISONE [Suspect]
     Active Substance: HYDROCORTISONE\HYDROCORTISONE ACETATE
     Indication: COVID-19
     Dosage: 50-100 MG
     Route: 042
  5. REMDESIVIR [Concomitant]
     Active Substance: REMDESIVIR
     Dosage: LOADING DOSE
  6. REMDESIVIR [Concomitant]
     Active Substance: REMDESIVIR
  7. CEFEPIME [Concomitant]
     Active Substance: CEFEPIME HYDROCHLORIDE
  8. MEROPENEM [Concomitant]
     Active Substance: MEROPENEM
  9. PIPERACILLIN SODIUM\TAZOBACTAM SODIUM [Concomitant]
     Active Substance: PIPERACILLIN SODIUM\TAZOBACTAM SODIUM
  10. VANCOMYCIN [Concomitant]
     Active Substance: VANCOMYCIN

REACTIONS (10)
  - Off label use [Fatal]
  - Bronchopulmonary aspergillosis [Fatal]
  - Pneumonia cytomegaloviral [Fatal]
  - Aspergillus infection [Fatal]
  - Bronchopleural fistula [Fatal]
  - Enterococcal infection [Fatal]
  - Klebsiella infection [Fatal]
  - Pulmonary haemorrhage [Fatal]
  - Pulmonary necrosis [Fatal]
  - Stenotrophomonas infection [Fatal]

NARRATIVE: CASE EVENT DATE: 20220101
